FAERS Safety Report 23076481 (Version 2)
Quarter: 2023Q4

REPORT INFORMATION
  Report Type: Spontaneous
  Country: US (occurrence: US)
  Receive Date: 20231017
  Receipt Date: 20231227
  Transmission Date: 20240109
  Serious: No
  Sender: FDA-Public Use
  Company Number: US-PFIZER INC-PV202300169603

PATIENT
  Age: 63 Year
  Sex: Female
  Weight: 48.98 kg

DRUGS (1)
  1. ESTROGENS, CONJUGATED [Suspect]
     Active Substance: ESTROGENS, CONJUGATED
     Indication: Atrophic vulvovaginitis
     Dosage: UNK
     Dates: end: 2013

REACTIONS (2)
  - Drug ineffective [Unknown]
  - Burning sensation [Unknown]
